FAERS Safety Report 5622178-4 (Version None)
Quarter: 2008Q1

REPORT INFORMATION
  Report Type: 
  Country: None (occurrence: None)
  Receive Date: 20080211
  Receipt Date: 20080201
  Transmission Date: 20080703
  Serious: Yes (Other)
  Sender: FDA-Public Use
  Company Number: US-PURDUE-USA_2008_0031410

PATIENT
  Sex: Female

DRUGS (1)
  1. PERI-COLACE 8.6 MG/50 MG [Suspect]
     Indication: SURGERY
     Dosage: 2 TABLET, DAILY
     Dates: start: 20080131

REACTIONS (2)
  - SUPRAVENTRICULAR EXTRASYSTOLES [None]
  - TACHYCARDIA [None]
